FAERS Safety Report 23631241 (Version 1)
Quarter: 2024Q1

REPORT INFORMATION
  Report Type: Spontaneous
  Country: US (occurrence: US)
  Receive Date: 20240314
  Receipt Date: 20240314
  Transmission Date: 20240410
  Serious: Yes (Other)
  Sender: FDA-Public Use
  Company Number: US-HIKMA PHARMACEUTICALS USA INC.-US-H14001-23-00472

PATIENT
  Age: 60 Year
  Sex: Female

DRUGS (4)
  1. DESVENLAFAXINE [Suspect]
     Active Substance: DESVENLAFAXINE
     Dosage: 100 MILLIGRAM
     Route: 065
  2. DESVENLAFAXINE [Suspect]
     Active Substance: DESVENLAFAXINE
     Indication: Product used for unknown indication
     Dosage: 25 MILLIGRAM
     Route: 065
  3. DESVENLAFAXINE [Suspect]
     Active Substance: DESVENLAFAXINE
     Dosage: 25 MILLIGRAM
     Route: 065
  4. DESVENLAFAXINE [Suspect]
     Active Substance: DESVENLAFAXINE
     Dosage: 50 MILLIGRAM
     Route: 065

REACTIONS (2)
  - Suicidal ideation [Unknown]
  - Drug withdrawal syndrome [Unknown]
